FAERS Safety Report 16475368 (Version 3)
Quarter: 2020Q3

REPORT INFORMATION
  Report Type: Report from Study
  Country: US (occurrence: US)
  Receive Date: 20190625
  Receipt Date: 20200921
  Transmission Date: 20201102
  Serious: No
  Sender: FDA-Public Use
  Company Number: US-SA-2019SA172024

PATIENT

DRUGS (3)
  1. DUPILUMAB [Suspect]
     Active Substance: DUPILUMAB
     Dosage: 300 MG, EVERY 3 TO 4 WEEKS
     Route: 058
     Dates: start: 2020
  2. DUPILUMAB [Suspect]
     Active Substance: DUPILUMAB
     Indication: HIDRADENITIS
     Dosage: 300 MG, Q10D
     Route: 058
     Dates: start: 201903
  3. DUPILUMAB [Suspect]
     Active Substance: DUPILUMAB
     Indication: DERMATITIS ATOPIC
     Dosage: 600 MG, 1X
     Route: 058
     Dates: start: 20200228, end: 20200228

REACTIONS (6)
  - Injection site swelling [Unknown]
  - Alopecia [Unknown]
  - Injection site erythema [Unknown]
  - Off label use [Unknown]
  - Madarosis [Unknown]
  - Product use in unapproved indication [Unknown]

NARRATIVE: CASE EVENT DATE: 201903
